FAERS Safety Report 14453051 (Version 1)
Quarter: 2018Q1

REPORT INFORMATION
  Report Type: Spontaneous
  Country: GB (occurrence: GB)
  Receive Date: 20180129
  Receipt Date: 20180129
  Transmission Date: 20180509
  Serious: Yes (Hospitalization, Other)
  Sender: FDA-Public Use
  Company Number: GB-BRISTOL-MYERS SQUIBB COMPANY-BMS-2018-003619

PATIENT
  Age: 29 Year
  Sex: Female
  Weight: 86.1 kg

DRUGS (1)
  1. ORENCIA [Suspect]
     Active Substance: ABATACEPT
     Indication: TYPE 1 DIABETES MELLITUS
     Dosage: 125 MG, QWK
     Route: 058
     Dates: start: 20171124, end: 20171222

REACTIONS (3)
  - Product use in unapproved indication [Unknown]
  - Sepsis [Recovering/Resolving]
  - Acute kidney injury [Unknown]

NARRATIVE: CASE EVENT DATE: 20171226
